FAERS Safety Report 21915708 (Version 1)
Quarter: 2023Q1

REPORT INFORMATION
  Report Type: Spontaneous
  Country: US (occurrence: US)
  Receive Date: 20230126
  Receipt Date: 20230126
  Transmission Date: 20230417
  Serious: Yes (Other)
  Sender: FDA-Public Use
  Company Number: US-BAYER-2023A009365

PATIENT

DRUGS (1)
  1. ALEVEX [Suspect]
     Active Substance: CAMPHOR (SYNTHETIC)\MENTHOL
     Dosage: UNK

REACTIONS (1)
  - Choking [Unknown]
